FAERS Safety Report 7638340-5 (Version None)
Quarter: 2011Q3

REPORT INFORMATION
  Report Type: 
  Country: None (occurrence: None)
  Receive Date: 20110727
  Receipt Date: 20110725
  Transmission Date: 20111222
  Serious: Yes (Hospitalization)
  Sender: FDA-Public Use
  Company Number: US-ROXANE LABORATORIES, INC.-2011-RO-00825RO

PATIENT
  Sex: Female
  Weight: 119 kg

DRUGS (3)
  1. SAPHRIS [Concomitant]
     Indication: PSYCHOTIC DISORDER
  2. METHADON AMIDONE HCL TAB [Suspect]
     Indication: PAIN
     Dosage: 40 MG
     Route: 048
     Dates: start: 20091209, end: 20110604
  3. DILAUDID [Concomitant]
     Indication: PAIN
     Dosage: 8 MG
     Dates: start: 20100819

REACTIONS (5)
  - PSYCHOTIC DISORDER [None]
  - PNEUMONIA [None]
  - PAIN [None]
  - DRUG LEVEL DECREASED [None]
  - WITHDRAWAL SYNDROME [None]
